FAERS Safety Report 25252279 (Version 3)
Quarter: 2025Q3

REPORT INFORMATION
  Report Type: Spontaneous
  Country: CH (occurrence: CH)
  Receive Date: 20250429
  Receipt Date: 20250711
  Transmission Date: 20251020
  Serious: Yes (Death, Life-Threatening, Hospitalization, Other)
  Sender: BRISTOL-MYERS SQUIBB COMPANY
  Company Number: None

PATIENT
  Age: 93 Year
  Sex: Female
  Weight: 66 kg

DRUGS (20)
  1. APIXABAN [Suspect]
     Active Substance: APIXABAN
     Indication: Atrial fibrillation
     Route: 048
     Dates: start: 20220419, end: 20250201
  2. CLOMETHIAZOLE [Suspect]
     Active Substance: CLOMETHIAZOLE
     Indication: Insomnia
     Dosage: 9:00 P.M.
     Route: 048
     Dates: start: 20220602, end: 20250201
  3. CLOMETHIAZOLE [Suspect]
     Active Substance: CLOMETHIAZOLE
     Route: 048
     Dates: start: 20220602, end: 20250131
  4. CLOMETHIAZOLE [Suspect]
     Active Substance: CLOMETHIAZOLE
     Route: 048
     Dates: start: 20250202, end: 20250202
  5. MIRTAZAPINE [Suspect]
     Active Substance: MIRTAZAPINE
     Indication: Insomnia
     Dosage: IN THE EVENING
     Route: 048
     Dates: start: 20240612, end: 20250201
  6. MIRTAZAPINE [Suspect]
     Active Substance: MIRTAZAPINE
     Route: 048
     Dates: start: 20250202, end: 20250202
  7. HERBALS\HOPS\VALERIAN [Suspect]
     Active Substance: HERBALS\HOPS\VALERIAN
     Indication: Insomnia
     Route: 048
     Dates: start: 20240612, end: 20250201
  8. HERBALS\HOPS\VALERIAN [Suspect]
     Active Substance: HERBALS\HOPS\VALERIAN
     Route: 048
     Dates: start: 20250202, end: 20250202
  9. EUTHYROX [Concomitant]
     Active Substance: LEVOTHYROXINE SODIUM
     Indication: Hypothyroidism
     Route: 048
     Dates: start: 20220805
  10. TORSEMIDE [Concomitant]
     Active Substance: TORSEMIDE
     Indication: Cardiac failure
     Dosage: INCREASE IN TORASEMIDE FROM 20 MG TO 40 MG
     Route: 048
     Dates: start: 20220805, end: 20250127
  11. TORSEMIDE [Concomitant]
     Active Substance: TORSEMIDE
     Dosage: (1-1-0-0)
     Route: 048
     Dates: start: 20250128
  12. TORSEMIDE [Concomitant]
     Active Substance: TORSEMIDE
     Route: 048
  13. DICLOFENAC SODIUM [Concomitant]
     Active Substance: DICLOFENAC SODIUM
     Indication: Arthralgia
     Route: 003
     Dates: start: 20220902
  14. DICLOFENAC SODIUM [Concomitant]
     Active Substance: DICLOFENAC SODIUM
     Dosage: 1 NUT
     Route: 003
     Dates: start: 20250128
  15. METOPROLOL [Concomitant]
     Active Substance: METOPROLOL
     Indication: Atrial fibrillation
     Route: 048
     Dates: start: 20240610
  16. DAFALGAN [Concomitant]
     Active Substance: ACETAMINOPHEN
     Indication: Arthralgia
     Route: 048
     Dates: start: 20240620
  17. LOPERAMIDE [Concomitant]
     Active Substance: LOPERAMIDE
     Indication: Diarrhoea
     Route: 048
     Dates: start: 20250116
  18. ARKOCAPSULAS CARBON VEGETAL [Concomitant]
     Indication: Product used for unknown indication
     Dosage: (2X225MG)
     Route: 048
     Dates: start: 20241229
  19. LACDIGEST [Concomitant]
     Indication: Lactose intolerance
     Route: 048
     Dates: start: 20250116
  20. CALCIMAGON D3 FORTE [Concomitant]
     Indication: Osteoporosis
     Route: 048
     Dates: start: 20220419

REACTIONS (5)
  - Product administration error [Recovered/Resolved]
  - Fall [Recovered/Resolved]
  - Subdural haematoma [Fatal]
  - Malaise [Recovered/Resolved]
  - Cardiac failure acute [Unknown]

NARRATIVE: CASE EVENT DATE: 20250127
